FAERS Safety Report 8993040 (Version 1)
Quarter: 2013Q1

REPORT INFORMATION
  Report Type: Spontaneous
  Country: US (occurrence: US)
  Receive Date: 20130102
  Receipt Date: 20130102
  Transmission Date: 20140127
  Serious: No
  Sender: FDA-Public Use
  Company Number: US-ASTRAZENECA-2012SE49472

PATIENT
  Age: 60 Year
  Sex: Female
  Weight: 71.7 kg

DRUGS (3)
  1. NEXIUM [Suspect]
     Indication: GASTROOESOPHAGEAL REFLUX DISEASE
     Route: 048
  2. CRESTOR [Suspect]
     Route: 048
  3. METFORMIN [Concomitant]

REACTIONS (1)
  - Oesophageal pain [Unknown]
